FAERS Safety Report 25440116 (Version 2)
Quarter: 2025Q2

REPORT INFORMATION
  Report Type: Spontaneous
  Country: IR (occurrence: IR)
  Receive Date: 20250616
  Receipt Date: 20250620
  Transmission Date: 20250717
  Serious: Yes (Death, Life-Threatening, Other)
  Sender: PFIZER
  Company Number: IR-MLMSERVICE-20250604-PI532769-00117-1

PATIENT
  Age: 63 Year
  Sex: Female

DRUGS (17)
  1. METHYLPREDNISOLONE ACETATE [Suspect]
     Active Substance: METHYLPREDNISOLONE ACETATE
     Indication: Steroid therapy
     Dosage: 40 MG, 2X/DAY (FREQ:12 H;ON READMITTED)
  2. DEXAMETHASONE [Suspect]
     Active Substance: DEXAMETHASONE
     Indication: COVID-19
     Dosage: 4 MG, 2X/DAY (FREQ:12 H)
  3. DEXAMETHASONE [Suspect]
     Active Substance: DEXAMETHASONE
     Dosage: 4 MG, 2X/DAY (FREQ:12 H;ON READMITTED)
  4. REMDESIVIR [Concomitant]
     Active Substance: REMDESIVIR
     Indication: COVID-19
     Dosage: 100 MG, DAILY
  5. REMDESIVIR [Concomitant]
     Active Substance: REMDESIVIR
     Dosage: 100 MG, 1X/DAY (ON READMITTED)
  6. VANCOMYCIN [Concomitant]
     Active Substance: VANCOMYCIN
     Indication: Antibiotic therapy
     Dosage: 1 G, 2X/DAY (1 G FREQ:12 H;ON READMITTED)
  7. MEROPENEM [Concomitant]
     Active Substance: MEROPENEM
     Indication: Antibiotic therapy
     Dosage: 1 G, 3X/DAY (1 G FREQ:8 H;ON READMITTED)
     Route: 042
  8. ATORVASTATIN [Concomitant]
     Active Substance: ATORVASTATIN
     Dosage: 20 MG, 1X/DAY
  9. ENOXAPARIN [Concomitant]
     Active Substance: ENOXAPARIN
     Dosage: 4000 IU, 2X/DAY (FREQ:12 H)
  10. PANTOPRAZOLE [Concomitant]
     Active Substance: PANTOPRAZOLE
     Dosage: 40 MG, 1X/DAY
  11. INSULIN NOS [Concomitant]
     Active Substance: INSULIN NOS
     Indication: Insulin therapy
     Dosage: UNK, 1X/DAY (5-15 U/QD)
  12. INSULIN NOS [Concomitant]
     Active Substance: INSULIN NOS
     Indication: Type 1 diabetes mellitus
     Dosage: UNK, 1X/DAY (REGULAR INSULIN 6-15 U/QD ON READMISSION)
  13. NAPROXEN [Concomitant]
     Active Substance: NAPROXEN
     Dosage: 500 MG, 2X/DAY (FREQ:12 H)
  14. COLCHICINE [Concomitant]
     Active Substance: COLCHICINE
     Dosage: 1 MG, 1X/DAY
  15. ROCALTROL [Concomitant]
     Active Substance: CALCITRIOL
     Dosage: 0.25 UG, 1X/DAY
  16. CLINDAMYCIN [Concomitant]
     Active Substance: CLINDAMYCIN
     Indication: Antibiotic therapy
     Dosage: 600 MG, 3X/DAY (FREQ:8 H;ON READMITTED)
     Route: 042
  17. AMPHOTERICIN B [Concomitant]
     Active Substance: AMPHOTERICIN B
     Indication: Antifungal treatment
     Dosage: 3 MG/KG, DAILY

REACTIONS (1)
  - Mucormycosis [Fatal]
